FAERS Safety Report 21907554 (Version 1)
Quarter: 2023Q1

REPORT INFORMATION
  Report Type: Spontaneous
  Country: NL (occurrence: NL)
  Receive Date: 20230125
  Receipt Date: 20230125
  Transmission Date: 20230417
  Serious: Yes (Life-Threatening)
  Sender: FDA-Public Use
  Company Number: None

PATIENT
  Sex: Female
  Weight: 57 kg

DRUGS (1)
  1. NAPROXEN [Suspect]
     Active Substance: NAPROXEN
     Indication: Pain
     Dosage: 1000 MILLIGRAM DAILY;  BRAND NAME NOT SPECIFIED
     Dates: start: 20221115, end: 20221223

REACTIONS (1)
  - Blood urine present [Recovered/Resolved]
